FAERS Safety Report 9765980 (Version 1)
Quarter: 2013Q4

REPORT INFORMATION
  Report Type: Spontaneous
  Country: US (occurrence: US)
  Receive Date: 20131217
  Receipt Date: 20131217
  Transmission Date: 20140711
  Serious: No
  Sender: FDA-Public Use
  Company Number: US-GLAXOSMITHKLINE-A1014674A

PATIENT
  Sex: Female
  Weight: 71.8 kg

DRUGS (5)
  1. VOTRIENT [Suspect]
     Indication: PRODUCT USED FOR UNKNOWN INDICATION
     Dosage: 200MG SEE DOSAGE TEXT
     Route: 048
  2. LISINOPRIL + HYDROCHLOROTHIAZIDE [Concomitant]
  3. WOMENS MULTIVITAMIN [Concomitant]
  4. MSM [Concomitant]
  5. LEVOTHYROXIN [Concomitant]

REACTIONS (2)
  - Stomatitis [Unknown]
  - Thyroid function test abnormal [Unknown]
